FAERS Safety Report 12105073 (Version 35)
Quarter: 2017Q3

REPORT INFORMATION
  Report Type: Spontaneous
  Country: US (occurrence: US)
  Receive Date: 20160223
  Receipt Date: 20170816
  Transmission Date: 20171127
  Serious: Yes (Hospitalization, Other)
  Sender: FDA-Public Use
  Company Number: US-PFIZER INC-2016105489

PATIENT
  Age: 77 Year
  Sex: Male
  Weight: 84.35 kg

DRUGS (29)
  1. HYDROCODONE [Concomitant]
     Active Substance: HYDROCODONE
     Indication: ARTHRALGIA
     Dosage: UNK
  2. SUTENT [Suspect]
     Active Substance: SUNITINIB MALATE
     Dosage: UNK
  3. MIRALAX [Concomitant]
     Active Substance: POLYETHYLENE GLYCOL 3350
     Dosage: UNK, AS NEEDED
  4. KYOLIC [Concomitant]
     Indication: SUPPLEMENTATION THERAPY
  5. FOLIC ACID. [Concomitant]
     Active Substance: FOLIC ACID
     Indication: BLADDER CANCER
     Dosage: UNK
     Dates: start: 2013
  6. MUCINEX [Concomitant]
     Active Substance: GUAIFENESIN
     Dosage: 600 MG, UNK [ONCE IN A WHILE]
  7. LEVOTHYROXINE SODIUM. [Concomitant]
     Active Substance: LEVOTHYROXINE SODIUM
     Dosage: 100 UG, UNK
     Dates: start: 20170115
  8. GABAPENTIN. [Concomitant]
     Active Substance: GABAPENTIN
     Indication: NEUROPATHY PERIPHERAL
     Dosage: UNK
     Dates: start: 20160110
  9. KYOLIC [Concomitant]
     Indication: BLADDER CANCER
     Dosage: UNK
     Dates: start: 2013
  10. ASPIRIN. [Concomitant]
     Active Substance: ASPIRIN
     Dosage: UNK
  11. SUTENT [Suspect]
     Active Substance: SUNITINIB MALATE
     Dosage: UNK
  12. NIACIN. [Concomitant]
     Active Substance: NIACIN
     Indication: BLADDER CANCER
     Dosage: UNK
     Dates: start: 2013
  13. VITAMIN B [Concomitant]
     Active Substance: VITAMIN B
     Dosage: UNK
  14. PRILOSEC [Concomitant]
     Active Substance: OMEPRAZOLE MAGNESIUM
     Dosage: 20 MG, UNK
  15. LYRICA [Concomitant]
     Active Substance: PREGABALIN
     Indication: NEUROPATHY PERIPHERAL
     Dosage: 150 MG, DAILY
     Dates: start: 20160301
  16. VITAMIN B12 [Concomitant]
     Active Substance: CYANOCOBALAMIN
     Indication: BLADDER CANCER
     Dosage: UNK
     Dates: start: 2013
  17. VITAMIN B6 [Concomitant]
     Active Substance: PYRIDOXINE HYDROCHLORIDE
     Dosage: UNK
  18. LEVOTHYROXINE SODIUM. [Concomitant]
     Active Substance: LEVOTHYROXINE SODIUM
     Indication: HYPOTHYROIDISM
     Dosage: 75 MG, UNK
  19. SUTENT [Suspect]
     Active Substance: SUNITINIB MALATE
     Indication: METASTATIC RENAL CELL CARCINOMA
     Dosage: 50 MG, CYCLIC (28 DAYS ON/14 DAYS OFF)
     Route: 048
     Dates: start: 20160204, end: 20160223
  20. SOY ISOFLAVONE [Concomitant]
     Active Substance: ISOFLAVONES SOY
     Indication: BLADDER CANCER
     Dosage: UNK
     Dates: start: 2013
  21. ASPERCREME WITH LIDOCAINE [Concomitant]
     Active Substance: LIDOCAINE
     Dosage: UNK
  22. OMEPRAZOLE. [Concomitant]
     Active Substance: OMEPRAZOLE
     Indication: ABDOMINAL DISCOMFORT
     Dosage: 20 MG, UNK
     Dates: start: 20160315
  23. BENZONATATE. [Concomitant]
     Active Substance: BENZONATATE
     Indication: COUGH
     Dosage: 100 UG, UNK
     Dates: start: 20170220
  24. MEGACE [Concomitant]
     Active Substance: MEGESTROL ACETATE
     Indication: APPETITE DISORDER
     Dosage: UNK
  25. PROAIR HFA [Concomitant]
     Active Substance: ALBUTEROL SULFATE
     Dosage: UNK
     Route: 045
  26. HYDROCHLOROTHIAZIDE. [Concomitant]
     Active Substance: HYDROCHLOROTHIAZIDE
     Dosage: UNK
  27. SUTENT [Suspect]
     Active Substance: SUNITINIB MALATE
     Dosage: 50 MG, CYCLIC (2 WEEKS ON/1 WEEK OFF)
     Route: 048
     Dates: start: 20160302, end: 20170730
  28. SUTENT [Suspect]
     Active Substance: SUNITINIB MALATE
     Dosage: UNK
     Route: 048
  29. HYDROCODONE BITARTRATE AND ACETAMINOPHEN [Concomitant]
     Active Substance: ACETAMINOPHEN\HYDROCODONE BITARTRATE
     Dosage: UNK

REACTIONS (59)
  - Oropharyngeal pain [Recovered/Resolved]
  - Cutis laxa [Not Recovered/Not Resolved]
  - Peripheral swelling [Not Recovered/Not Resolved]
  - Dyspnoea [Recovered/Resolved]
  - Pain in extremity [Not Recovered/Not Resolved]
  - Contusion [Unknown]
  - Platelet count decreased [Recovered/Resolved]
  - Proteinuria [Recovered/Resolved]
  - Erythema [Not Recovered/Not Resolved]
  - Weight decreased [Recovered/Resolved]
  - Productive cough [Recovered/Resolved]
  - Haemoptysis [Recovered/Resolved]
  - Vision blurred [Recovered/Resolved]
  - Muscular weakness [Not Recovered/Not Resolved]
  - Rash [Recovered/Resolved]
  - Weight increased [Recovered/Resolved]
  - Gait disturbance [Not Recovered/Not Resolved]
  - Epistaxis [Recovered/Resolved]
  - Chromaturia [Recovered/Resolved]
  - Constipation [Recovered/Resolved]
  - Body temperature decreased [Recovered/Resolved]
  - Neuropathy peripheral [Not Recovered/Not Resolved]
  - Pallor [Not Recovered/Not Resolved]
  - Vasculitis [Unknown]
  - Dysgeusia [Recovered/Resolved]
  - Dysarthria [Recovered/Resolved]
  - Pneumonia [Recovered/Resolved]
  - Arthralgia [Not Recovered/Not Resolved]
  - Rhinorrhoea [Recovered/Resolved]
  - Stomatitis [Recovered/Resolved]
  - Dizziness [Recovered/Resolved]
  - Discomfort [Unknown]
  - Decreased appetite [Recovered/Resolved]
  - Chills [Recovered/Resolved]
  - Balance disorder [Recovered/Resolved]
  - Neuralgia [Not Recovered/Not Resolved]
  - Pain in extremity [Recovered/Resolved]
  - Sputum discoloured [Recovered/Resolved]
  - Joint swelling [Not Recovered/Not Resolved]
  - Pyrexia [Recovered/Resolved]
  - Pulmonary mass [Recovered/Resolved]
  - Impaired healing [Recovering/Resolving]
  - Dyspepsia [Recovered/Resolved]
  - Cough [Recovered/Resolved]
  - Dry mouth [Recovered/Resolved]
  - Liver function test increased [Recovered/Resolved]
  - Nasopharyngitis [Recovered/Resolved]
  - Nausea [Recovered/Resolved]
  - Bone pain [Recovered/Resolved]
  - Skin ulcer [Recovered/Resolved]
  - Fluid intake reduced [Recovered/Resolved]
  - Gait disturbance [Recovered/Resolved]
  - Condition aggravated [Not Recovered/Not Resolved]
  - Faeces discoloured [Recovered/Resolved]
  - Dysphonia [Not Recovered/Not Resolved]
  - Abdominal discomfort [Recovered/Resolved]
  - Fatigue [Recovered/Resolved]
  - Vomiting [Recovered/Resolved]
  - Insomnia [Recovered/Resolved]

NARRATIVE: CASE EVENT DATE: 201602
